FAERS Safety Report 7791574-1 (Version None)
Quarter: 2011Q4

REPORT INFORMATION
  Report Type: 
  Country: None (occurrence: None)
  Receive Date: 20111003
  Receipt Date: 20110921
  Transmission Date: 20120403
  Serious: Yes (Hospitalization)
  Sender: FDA-Public Use
  Company Number: IT-JNJFOC-20110910358

PATIENT
  Sex: Male
  Weight: 75 kg

DRUGS (20)
  1. OMEPRAZOLE [Concomitant]
     Indication: GASTROINTESTINAL DISORDER THERAPY
     Route: 048
  2. LOPRESSOR [Concomitant]
     Indication: CARDIAC DISORDER
     Dosage: QUARTER TABLET TWICE DAILY
     Route: 048
  3. ACETAMINOPHEN [Concomitant]
     Indication: PYREXIA
     Dosage: 1FL
     Route: 065
  4. CEFTRIAXONE [Concomitant]
     Indication: BACTERIAL INFECTION
     Route: 065
  5. PREDNISONE [Concomitant]
     Indication: INFECTION
     Route: 048
  6. ROCEPHIN [Concomitant]
     Indication: BACTERIAL INFECTION
     Route: 042
     Dates: start: 20110810
  7. NORVASC [Concomitant]
     Indication: HYPERTENSION
     Dosage: QUARTER TABLET ONCE DAILY
     Route: 048
  8. TACHIDOL [Concomitant]
     Indication: BONE PAIN
  9. ABIRATERONE ACETATE [Suspect]
     Route: 048
  10. VALSARTAN  AND HYDROCHLOROTHIAZIDE [Concomitant]
     Indication: HYPERTENSION
     Dosage: 800 MG/12.5 MG
     Route: 048
  11. VALSARTAN [Concomitant]
     Indication: HYPERTENSION
     Route: 048
  12. DINIKET [Concomitant]
     Indication: CARDIAC DISORDER
     Route: 048
  13. GENTALYN [Concomitant]
     Indication: INFECTION
     Route: 042
  14. METOPROLOL TARTRATE [Concomitant]
     Indication: CARDIAC DISORDER
     Dosage: QUARTER TABLET TWICE DAILY
     Route: 048
  15. ABIRATERONE ACETATE [Suspect]
     Indication: PROSTATE CANCER METASTATIC
     Route: 048
     Dates: start: 20110427
  16. AUGMENTIN '125' [Concomitant]
     Indication: INFECTION
     Dosage: 875 MG +  125 MG
     Route: 048
     Dates: start: 20110816, end: 20110820
  17. TAMSULOSIN HYDROCHLORIDE [Concomitant]
     Indication: URINARY TRACT DISORDER
     Route: 048
  18. COUMADIN [Concomitant]
     Indication: THROMBOSIS PROPHYLAXIS
     Dosage: BASED ON INR
     Route: 048
  19. CEFTAZIDIME [Concomitant]
     Indication: BACTERIAL INFECTION
     Route: 048
     Dates: start: 20110810, end: 20110816
  20. UNKNOWN MEDICATION [Concomitant]
     Indication: INFECTION
     Route: 048

REACTIONS (2)
  - PYREXIA [None]
  - UROSEPSIS [None]
